FAERS Safety Report 19679413 (Version 1)
Quarter: 2021Q3

REPORT INFORMATION
  Report Type: Report from Study
  Country: IN (occurrence: IN)
  Receive Date: 20210809
  Receipt Date: 20210809
  Transmission Date: 20211014
  Serious: Yes (Other)
  Sender: FDA-Public Use
  Company Number: NVSC2021IN173917

PATIENT
  Age: 55 Year
  Sex: Female

DRUGS (2)
  1. TASIGNA [Suspect]
     Active Substance: NILOTINIB
     Indication: CHRONIC MYELOID LEUKAEMIA
     Dosage: 400 MG, BID
     Route: 065
     Dates: start: 20210614, end: 202107
  2. TASIGNA [Suspect]
     Active Substance: NILOTINIB
     Dosage: 200 MG, QD
     Route: 065
     Dates: start: 20210705

REACTIONS (6)
  - Pyrexia [Not Recovered/Not Resolved]
  - Thrombocytopenia [Not Recovered/Not Resolved]
  - Product use issue [Unknown]
  - Anaemia [Not Recovered/Not Resolved]
  - Decreased appetite [Not Recovered/Not Resolved]
  - Rash [Not Recovered/Not Resolved]

NARRATIVE: CASE EVENT DATE: 202106
